FAERS Safety Report 23530775 (Version 1)
Quarter: 2024Q1

REPORT INFORMATION
  Report Type: Spontaneous
  Country: DE (occurrence: DE)
  Receive Date: 20240216
  Receipt Date: 20240216
  Transmission Date: 20240410
  Serious: Yes (Other)
  Sender: FDA-Public Use
  Company Number: None

PATIENT

DRUGS (1)
  1. GRAZAX [Suspect]
     Active Substance: PHLEUM PRATENSE POLLEN
     Indication: Immune tolerance induction
     Dosage: UNK UNK, QD
     Route: 048
     Dates: start: 20240201

REACTIONS (6)
  - Respiratory distress [Not Recovered/Not Resolved]
  - Cough [Not Recovered/Not Resolved]
  - Mouth swelling [Not Recovered/Not Resolved]
  - Dry throat [Not Recovered/Not Resolved]
  - Blister [Not Recovered/Not Resolved]
  - Ear pain [Not Recovered/Not Resolved]
